FAERS Safety Report 20113870 (Version 3)
Quarter: 2021Q4

REPORT INFORMATION
  Report Type: Report from Study
  Country: IT (occurrence: IT)
  Receive Date: 20211125
  Receipt Date: 20211213
  Transmission Date: 20220303
  Serious: Yes (Hospitalization)
  Sender: FDA-Public Use
  Company Number: IT-GLAXOSMITHKLINE-IT2021GSK224286

PATIENT
  Age: 70 Year
  Sex: Female
  Weight: 82 kg

DRUGS (12)
  1. DOSTARLIMAB [Suspect]
     Active Substance: DOSTARLIMAB
     Indication: Neoplasm
     Dosage: 500 MG
     Route: 042
     Dates: start: 20200129, end: 20200129
  2. DOSTARLIMAB [Suspect]
     Active Substance: DOSTARLIMAB
     Dosage: 100 MG
     Route: 042
     Dates: start: 20200812, end: 20200812
  3. DOSTARLIMAB [Suspect]
     Active Substance: DOSTARLIMAB
     Dosage: UNK
     Route: 042
     Dates: start: 20210113, end: 20210113
  4. LEVOFLOXACIN [Concomitant]
     Active Substance: LEVOFLOXACIN
     Indication: Prophylaxis
     Dosage: 500 MG, QD
     Route: 048
     Dates: start: 20201116, end: 20201121
  5. LIDOCAINE [Concomitant]
     Active Substance: LIDOCAINE
     Indication: Pain prophylaxis
     Dosage: UNK PUFF(S), SINGLE
     Route: 061
     Dates: start: 20201116, end: 20201116
  6. BISOPROLOL [Concomitant]
     Active Substance: BISOPROLOL
     Indication: Atrial fibrillation
     Dosage: 1.25 MG, Z EVERY HOUR
     Route: 048
     Dates: start: 20201201, end: 20201201
  7. ACETAMINOPHEN [Concomitant]
     Active Substance: ACETAMINOPHEN
     Indication: Pyrexia
     Dosage: 1000 MG, Z PRN
     Dates: start: 20201112
  8. ACETAMINOPHEN [Concomitant]
     Active Substance: ACETAMINOPHEN
     Indication: Pain
     Dosage: 1000 MG, Z PRN
     Route: 048
     Dates: start: 20201201, end: 20210209
  9. MAG2 (MEDICATION UNKNOWN) [Concomitant]
     Indication: Nutritional supplementation
     Dosage: 2.25 G, QD
     Route: 048
     Dates: start: 20201201, end: 20210209
  10. INSULIN GLARGINE [Concomitant]
     Active Substance: INSULIN GLARGINE
     Indication: Metabolic disorder prophylaxis
     Dosage: 22 DF (22 UNIT), QD
     Route: 058
     Dates: start: 20201201, end: 20210209
  11. INSULIN LISPRO [Concomitant]
     Active Substance: INSULIN LISPRO
     Indication: Metabolic disorder prophylaxis
     Dosage: 20 DF (20 UNITS), QD
     Route: 058
     Dates: start: 20201201, end: 20210209
  12. METOCLOPRAMIDE [Concomitant]
     Active Substance: METOCLOPRAMIDE
     Indication: Vomiting
     Dosage: 10 MG, Z (PRN)
     Route: 048
     Dates: start: 20201201, end: 20210209

REACTIONS (1)
  - Pneumonia [Recovered/Resolved with Sequelae]

NARRATIVE: CASE EVENT DATE: 20201201
